FAERS Safety Report 19430057 (Version 5)
Quarter: 2021Q3

REPORT INFORMATION
  Report Type: Report from Study
  Country: US (occurrence: US)
  Receive Date: 20210617
  Receipt Date: 20210820
  Transmission Date: 20211014
  Serious: Yes (Hospitalization, Other)
  Sender: FDA-Public Use
  Company Number: US-JNJFOC-20210630606

PATIENT
  Age: 83 Year
  Sex: Male
  Weight: 95.34 kg

DRUGS (3)
  1. SELEXIPAG [Suspect]
     Active Substance: SELEXIPAG
     Indication: PULMONARY ARTERIAL HYPERTENSION
     Route: 048
  2. SELEXIPAG [Suspect]
     Active Substance: SELEXIPAG
     Route: 048
  3. TADALAFIL. [Concomitant]
     Active Substance: TADALAFIL

REACTIONS (5)
  - Internal haemorrhage [Unknown]
  - Haemoglobin decreased [Unknown]
  - Haemorrhage [Unknown]
  - Hypotension [Unknown]
  - Lethargy [Unknown]

NARRATIVE: CASE EVENT DATE: 20210609
